FAERS Safety Report 4378708-6 (Version None)
Quarter: 2004Q2

REPORT INFORMATION
  Report Type: 
  Country: None (occurrence: None)
  Receive Date: 20040616
  Receipt Date: 20020717
  Transmission Date: 20050107
  Serious: Yes (Hospitalization, Other)
  Sender: FDA-Public Use
  Company Number: US-BRISTOL-MYERS SQUIBB COMPANY-11955267

PATIENT
  Age: 70 Year
  Sex: Male
  Weight: 71 kg

DRUGS (6)
  1. PACLITAXEL [Suspect]
     Indication: NON-SMALL CELL LUNG CANCER
     Route: 042
     Dates: start: 20020702, end: 20020708
  2. PARAPLATIN [Suspect]
     Indication: NON-SMALL CELL LUNG CANCER
     Route: 042
     Dates: start: 20020702, end: 20020708
  3. ATROVENT [Concomitant]
     Route: 055
  4. ALBUTEROL [Concomitant]
     Route: 055
  5. MEGACE [Concomitant]
     Indication: ANOREXIA
     Route: 048
  6. TYLENOL PM [Concomitant]
     Route: 048

REACTIONS (3)
  - DEHYDRATION [None]
  - ILEUS [None]
  - ORAL CANDIDIASIS [None]
